FAERS Safety Report 20042320 (Version 1)
Quarter: 2021Q4

REPORT INFORMATION
  Report Type: Spontaneous
  Country: US (occurrence: US)
  Receive Date: 20211108
  Receipt Date: 20211108
  Transmission Date: 20220304
  Serious: No
  Sender: FDA-Public Use
  Company Number: US-CELGENE-USA-20211008614

PATIENT
  Age: 75 Year
  Sex: Male

DRUGS (1)
  1. REVLIMID [Suspect]
     Active Substance: LENALIDOMIDE
     Indication: Plasma cell myeloma
     Route: 050
     Dates: start: 20210922

REACTIONS (2)
  - Diarrhoea [Unknown]
  - Dysphagia [Unknown]

NARRATIVE: CASE EVENT DATE: 20211001
